FAERS Safety Report 17053678 (Version 1)
Quarter: 2019Q4

REPORT INFORMATION
  Report Type: Spontaneous
  Country: SE (occurrence: SE)
  Receive Date: 20191120
  Receipt Date: 20191120
  Transmission Date: 20200122
  Serious: Yes (Disabling)
  Sender: FDA-Public Use
  Company Number: SE-MYLANLABS-2019M1110428

PATIENT
  Age: 21 Year
  Sex: Female
  Weight: 70 kg

DRUGS (1)
  1. CITALOPRAM [Suspect]
     Active Substance: CITALOPRAM HYDROBROMIDE
     Indication: DEPRESSION
     Dosage: UNK
     Dates: start: 201305

REACTIONS (1)
  - Visual snow syndrome [Not Recovered/Not Resolved]

NARRATIVE: CASE EVENT DATE: 201305
